APPROVED DRUG PRODUCT: BISOPROLOL FUMARATE AND HYDROCHLOROTHIAZIDE
Active Ingredient: BISOPROLOL FUMARATE; HYDROCHLOROTHIAZIDE
Strength: 2.5MG;6.25MG
Dosage Form/Route: TABLET;ORAL
Application: A215666 | Product #001 | TE Code: AB
Applicant: CADILA HEALTHCARE LTD
Approved: Nov 4, 2022 | RLD: No | RS: No | Type: RX